FAERS Safety Report 21971903 (Version 1)
Quarter: 2023Q1

REPORT INFORMATION
  Report Type: Spontaneous
  Country: US (occurrence: US)
  Receive Date: 20230209
  Receipt Date: 20230209
  Transmission Date: 20230418
  Serious: No
  Sender: FDA-Public Use
  Company Number: US-THE RITEDOSE CORPORATION-2022RIT000287

PATIENT

DRUGS (1)
  1. ALBUTEROL SULFATE [Suspect]
     Active Substance: ALBUTEROL SULFATE
     Indication: Asthma
     Dosage: 1 VIAL AS NEEDED
     Route: 055

REACTIONS (4)
  - Respiratory distress [Unknown]
  - Dyspnoea [Unknown]
  - Wheezing [Unknown]
  - Expired product administered [Unknown]

NARRATIVE: CASE EVENT DATE: 20221101
